FAERS Safety Report 5808809-4 (Version None)
Quarter: 2008Q3

REPORT INFORMATION
  Report Type: 
  Country: None (occurrence: None)
  Receive Date: 20080714
  Receipt Date: 20080708
  Transmission Date: 20090109
  Serious: Yes (Hospitalization)
  Sender: FDA-Public Use
  Company Number: B0504094B

PATIENT
  Age: 81 Year
  Sex: Female
  Weight: 39.9 kg

DRUGS (1)
  1. LAMOTRIGINE [Suspect]
     Indication: EPILEPSY
     Dosage: 400MG PER DAY
     Route: 048
     Dates: start: 20071121

REACTIONS (3)
  - ATAXIA [None]
  - DYSPNOEA [None]
  - GAIT DISTURBANCE [None]
